FAERS Safety Report 19350290 (Version 1)
Quarter: 2021Q2

REPORT INFORMATION
  Report Type: Spontaneous
  Country: US (occurrence: US)
  Receive Date: 20210531
  Receipt Date: 20210531
  Transmission Date: 20210717
  Serious: No
  Sender: FDA-Public Use
  Company Number: US-BAUSCH-BL-2021-018586

PATIENT
  Age: 85 Year
  Sex: Female
  Weight: 59.02 kg

DRUGS (2)
  1. LOTEMAX [Suspect]
     Active Substance: LOTEPREDNOL ETABONATE
     Indication: PRODUCT USE IN UNAPPROVED INDICATION
  2. LOTEMAX [Suspect]
     Active Substance: LOTEPREDNOL ETABONATE
     Indication: EYE ALLERGY
     Dosage: STARTED AT LEAST A COUPLE OF YEARS AGO
     Route: 047
     Dates: end: 2021

REACTIONS (6)
  - Product use in unapproved indication [Unknown]
  - Weight increased [Unknown]
  - Symptom recurrence [Unknown]
  - Eye allergy [Unknown]
  - Therapy interrupted [Unknown]
  - Drug effective for unapproved indication [Unknown]

NARRATIVE: CASE EVENT DATE: 2020
